FAERS Safety Report 5798030-0 (Version None)
Quarter: 2008Q3

REPORT INFORMATION
  Report Type: 
  Country: None (occurrence: None)
  Receive Date: 20080702
  Receipt Date: 20080624
  Transmission Date: 20090109
  Serious: Yes (Hospitalization)
  Sender: FDA-Public Use
  Company Number: US-ROCHE-572080

PATIENT
  Age: 81 Year
  Sex: Male
  Weight: 70.5 kg

DRUGS (8)
  1. VALIUM [Suspect]
     Indication: DRUG USE FOR UNKNOWN INDICATION
     Route: 065
  2. LUNESTA [Suspect]
     Indication: INSOMNIA
     Dosage: DOSAGE RECEIVED EVERY EVENING
     Route: 048
     Dates: start: 20080401, end: 20080401
  3. LUNESTA [Suspect]
     Dosage: DOSAGE RECEIVED EVERY EVENING.
     Route: 048
     Dates: start: 20080401
  4. AMBIEN CR [Suspect]
     Indication: DRUG USE FOR UNKNOWN INDICATION
     Route: 065
  5. AMBIEN CR [Suspect]
     Dosage: DOSAGE INCREASED
     Route: 065
  6. AMBIEN [Suspect]
     Indication: DRUG USE FOR UNKNOWN INDICATION
     Route: 065
  7. MIRTAZAPINE [Suspect]
     Indication: DRUG USE FOR UNKNOWN INDICATION
     Route: 065
  8. TRICOR [Concomitant]

REACTIONS (5)
  - DIARRHOEA [None]
  - GALLBLADDER DISORDER [None]
  - NERVOUS SYSTEM DISORDER [None]
  - NIGHTMARE [None]
  - WEIGHT DECREASED [None]
